FAERS Safety Report 22608406 (Version 1)
Quarter: 2023Q2

REPORT INFORMATION
  Report Type: Spontaneous
  Country: US (occurrence: US)
  Receive Date: 20230616
  Receipt Date: 20230616
  Transmission Date: 20230722
  Serious: Yes (Hospitalization)
  Sender: FDA-Public Use
  Company Number: US-PROCTER_AND_GAMBLE-PH23005538

PATIENT
  Age: 62 Year
  Sex: Female

DRUGS (3)
  1. CALCIUM CARBONATE [Suspect]
     Active Substance: CALCIUM CARBONATE
     Indication: Gastrooesophageal reflux disease
     Dosage: 2 TABLET (400MG ELEMENTAL CALCIUM PER TABLET), 3 /DAY
     Route: 048
  2. CALCIUM CARBONATE\CHOLECALCIFEROL [Suspect]
     Active Substance: CALCIUM CARBONATE\CHOLECALCIFEROL
     Indication: Osteoporosis
     Dosage: 1 TABLET (600MG ELEMENTAL CALCIUM, 20MCG VITAMIN D3), 2 /DAY FOR OVER 2 YEARS
     Route: 048
  3. TRAMADOL [Concomitant]
     Active Substance: TRAMADOL
     Indication: Osteoarthritis
     Dosage: UNK

REACTIONS (16)
  - Milk-alkali syndrome [Unknown]
  - Asthenia [Recovered/Resolved]
  - Tenderness [Recovered/Resolved]
  - Renal impairment [Recovering/Resolving]
  - Tachycardia [Recovered/Resolved]
  - Platelet count increased [Recovered/Resolved]
  - Hypercalcaemia [Recovered/Resolved]
  - Blood pressure increased [Recovered/Resolved]
  - Blood phosphorus decreased [Recovered/Resolved]
  - Hypokalaemia [Recovered/Resolved]
  - Blood creatinine increased [Unknown]
  - Blood parathyroid hormone decreased [None]
  - Leukocytosis [Recovered/Resolved]
  - Hypophagia [Recovered/Resolved]
  - Nephrolithiasis [Unknown]
  - Renal injury [Recovering/Resolving]
